FAERS Safety Report 9804240 (Version 4)
Quarter: 2014Q2

REPORT INFORMATION
  Report Type: Report from Study
  Country: JP (occurrence: JP)
  Receive Date: 20140108
  Receipt Date: 20140422
  Transmission Date: 20141212
  Serious: Yes (Hospitalization)
  Sender: FDA-Public Use
  Company Number: JP-ROCHE-1326447

PATIENT
  Age: 60 Year
  Sex: Male
  Weight: 41.4 kg

DRUGS (26)
  1. TRASTUZUMAB [Suspect]
     Indication: HER-2 POSITIVE GASTRIC CANCER
     Dosage: LOADING DOSE
     Route: 042
     Dates: start: 20130920
  2. TRASTUZUMAB [Suspect]
     Dosage: MAINTENANCE DOSE
     Route: 042
     Dates: start: 20131217
  3. CAPECITABINE [Suspect]
     Indication: HER-2 POSITIVE GASTRIC CANCER
     Dosage: LAST DOSE PRIOR TO EVENT:02/OCT/2013
     Route: 048
     Dates: start: 20130920, end: 20131002
  4. CISPLATIN [Suspect]
     Indication: GASTRIC CANCER
     Dosage: LAST DOSE PRIOR TO EVNT:20/SEP/2013
     Route: 042
     Dates: start: 20130920, end: 20131030
  5. ADALAT CR [Concomitant]
     Indication: HYPERTENSION
     Route: 048
     Dates: start: 2008
  6. TENORMIN [Concomitant]
     Indication: HYPERTENSION
     Route: 048
     Dates: start: 20130926
  7. PRIMPERAN [Concomitant]
     Dosage: INDICATION :ANTIEMETIC THERAPY
     Route: 048
     Dates: start: 20130923
  8. PURSENNID [Concomitant]
     Indication: CONSTIPATION
     Route: 048
     Dates: start: 20130922
  9. MOHRUS PAP [Concomitant]
     Indication: PAIN IN EXTREMITY
     Dosage: SELECT IF ONGOING=YES
     Route: 061
     Dates: start: 20130926
  10. MAGLAX [Concomitant]
     Indication: CONSTIPATION
     Route: 048
     Dates: start: 20131018
  11. TAKEPRON [Concomitant]
     Indication: NAUSEA
     Route: 048
     Dates: start: 20131031
  12. TSUMURA RIKKUNSHITO [Concomitant]
     Indication: NAUSEA
     Route: 048
     Dates: start: 20131113
  13. CERCINE [Concomitant]
     Route: 042
     Dates: start: 20131226, end: 20131226
  14. BUSCOPAN [Concomitant]
     Route: 030
     Dates: start: 20131226, end: 20131226
  15. CALONAL [Concomitant]
     Indication: PYREXIA
     Route: 048
     Dates: start: 20131230, end: 20131230
  16. CEFAZOLIN SODIUM [Concomitant]
     Indication: PROPHYLAXIS
     Dosage: FOR : PREVENTION OF INFECTIONS DISEASE
     Route: 042
     Dates: start: 20140110, end: 20140112
  17. NORMAL SALINE [Concomitant]
     Route: 042
     Dates: start: 20140110, end: 20140110
  18. SEVOFRANE [Concomitant]
     Indication: ANAESTHESIA
     Route: 042
     Dates: start: 20140110, end: 20140110
  19. ESLAX [Concomitant]
     Indication: ANAESTHESIA
     Route: 042
     Dates: start: 20140110, end: 20140110
  20. FENTANYL [Concomitant]
     Indication: ANAESTHESIA
     Route: 042
     Dates: start: 20140110, end: 20140110
  21. ULTIVA [Concomitant]
     Indication: ANAESTHESIA
     Route: 042
     Dates: start: 20140110, end: 20140110
  22. PROPOFOL [Concomitant]
     Indication: ANAESTHESIA
     Route: 042
     Dates: start: 20140110, end: 20140110
  23. CARBOCAIN [Concomitant]
     Indication: ANAESTHESIA
     Dosage: DOSE UNIT = 2 AMPULE
     Route: 065
     Dates: start: 20140110, end: 20140110
  24. ANAPEINE [Concomitant]
     Indication: ANAESTHESIA
     Route: 065
     Dates: start: 20140110, end: 20140110
  25. EPHEDRIN [Concomitant]
     Indication: ANAESTHESIA
     Route: 042
     Dates: start: 20140110, end: 20140110
  26. PLACEBO [Suspect]
     Indication: GASTRIC CANCER
     Dosage: LAST DOSE PRIOR TO SAE: 17/DEC/2013
     Route: 042
     Dates: start: 20130920

REACTIONS (1)
  - Obstruction gastric [Recovered/Resolved]
